FAERS Safety Report 4953431-5 (Version None)
Quarter: 2006Q1

REPORT INFORMATION
  Report Type: 
  Country: None (occurrence: None)
  Receive Date: 20060324
  Receipt Date: 20060314
  Transmission Date: 20060701
  Serious: Yes (Hospitalization)
  Sender: FDA-Public Use
  Company Number: GR-ABBOTT-06P-066-0327946-01

PATIENT
  Sex: Female
  Weight: 80 kg

DRUGS (6)
  1. HUMIRA [Suspect]
     Indication: RHEUMATOID ARTHRITIS
     Route: 058
     Dates: start: 20041101, end: 20060303
  2. LABETALOL HYDROCHLORIDE [Concomitant]
     Indication: RHEUMATOID ARTHRITIS
     Dates: start: 20060301
  3. VASERETIC [Concomitant]
     Indication: HYPERTENSION
     Dates: start: 20040501
  4. ALENDRONATE SODIUM [Concomitant]
     Indication: DRUG USE FOR UNKNOWN INDICATION
     Dates: start: 20030301
  5. COMMERCIAL HUMIRA [Concomitant]
     Indication: RHEUMATOID ARTHRITIS
     Route: 058
     Dates: start: 20040120
  6. CALCIORAL [Concomitant]
     Indication: OSTEOPOROSIS
     Dates: start: 19950101

REACTIONS (4)
  - ARTHRALGIA [None]
  - MALAISE [None]
  - PROTEINURIA [None]
  - PYREXIA [None]
